FAERS Safety Report 7857283-5 (Version None)
Quarter: 2011Q4

REPORT INFORMATION
  Report Type: 
  Country: None (occurrence: None)
  Receive Date: 20111027
  Receipt Date: 20111018
  Transmission Date: 20120403
  Serious: No
  Sender: FDA-Public Use
  Company Number: US-BIOGENIDEC-2010BI042027

PATIENT
  Age: 60 Year
  Sex: Female

DRUGS (2)
  1. TYSABRI [Suspect]
     Indication: MULTIPLE SCLEROSIS
     Route: 042
     Dates: start: 20081211, end: 20101111
  2. TYSABRI [Suspect]
     Route: 042
     Dates: start: 20110512, end: 20110915

REACTIONS (2)
  - SINUSITIS [None]
  - SINUS CONGESTION [None]
